FAERS Safety Report 6160953-0 (Version None)
Quarter: 2009Q2

REPORT INFORMATION
  Report Type: 
  Country: None (occurrence: None)
  Receive Date: 20090420
  Receipt Date: 20070621
  Transmission Date: 20091009
  Serious: Yes (Other)
  Sender: FDA-Public Use
  Company Number: PHHO2007GR00593

PATIENT
  Sex: Female
  Weight: 58.3 kg

DRUGS (3)
  1. ICL670A ICL+ [Suspect]
     Indication: BLOOD IRON INCREASED
     Dosage: 500 MG, QD
     Route: 048
     Dates: start: 20060810, end: 20061127
  2. ICL670A ICL+ [Suspect]
     Dosage: 250 MG, QD
     Route: 048
     Dates: start: 20061128, end: 20070104
  3. SALOSPIR [Concomitant]
     Indication: PLATELET COUNT INCREASED
     Dates: start: 20060801, end: 20070105

REACTIONS (6)
  - CONSTIPATION [None]
  - COUGH [None]
  - DRUG EXPOSURE DURING PREGNANCY [None]
  - GESTATIONAL DIABETES [None]
  - NORMAL NEWBORN [None]
  - OROPHARYNGEAL PAIN [None]
